FAERS Safety Report 9532106 (Version 1)
Quarter: 2013Q1

REPORT INFORMATION
  Report Type: Spontaneous
  Country: US (occurrence: None)
  Receive Date: 20130329
  Receipt Date: 20130329
  Transmission Date: 20140127
  Serious: No
  Sender: FDA-Public Use
  Company Number: 1000041968

PATIENT
  Age: 77 Year
  Sex: Female

DRUGS (4)
  1. LINZESS (LINACLOTIDE) (145 MICROGRAM CAPSULES) [Suspect]
     Indication: CONSTIPATION
     Route: 048
     Dates: start: 20130109
  2. DIOVAN (VALSARTAN) (VALSARTAN) [Concomitant]
  3. ZETIA (EZETIMIBE) (EZETIMIBE) [Concomitant]
  4. XANAX (ALPRAZOLAM) (ALPRAZOLAM) [Concomitant]

REACTIONS (1)
  - Drug ineffective [None]
